FAERS Safety Report 9431413 (Version 3)
Quarter: 2014Q2

REPORT INFORMATION
  Report Type: Spontaneous
  Country: US (occurrence: US)
  Receive Date: 20130730
  Receipt Date: 20140409
  Transmission Date: 20141212
  Serious: Yes (Hospitalization)
  Sender: FDA-Public Use
  Company Number: US-B.I. PHARMACEUTICALS,INC./RIDGEFIELD-2013-BI-22289BP

PATIENT
  Age: 73 Year
  Sex: Male
  Weight: 92.99 kg

DRUGS (11)
  1. PRADAXA [Suspect]
     Indication: ANTICOAGULANT THERAPY
     Dosage: 300 MG
     Route: 065
     Dates: start: 20110812, end: 20130124
  2. PRADAXA [Suspect]
     Indication: ATRIAL FIBRILLATION
  3. SOTALOL [Concomitant]
     Indication: ATRIAL FIBRILLATION
     Dosage: 40 MG
     Route: 048
     Dates: start: 2010, end: 20140211
  4. PANTOPRAZOLE [Concomitant]
     Dosage: 40 MG
     Route: 048
     Dates: start: 2006
  5. ENALAPRIL [Concomitant]
     Dosage: 5 MG
     Route: 048
     Dates: start: 1988
  6. TRIAMTERENE/HYDROCHLOROTHIAZIDE [Concomitant]
     Route: 065
     Dates: start: 1988
  7. ATORVASTATIN [Concomitant]
     Dosage: 10 MG
     Route: 048
  8. COQ10 [Concomitant]
     Dosage: 20 MG
     Route: 048
  9. ALLOPURINOL [Concomitant]
     Dosage: 300 MG
     Route: 048
     Dates: start: 2012, end: 2013
  10. COLCHICINE [Concomitant]
     Dosage: 0.6 MG
     Route: 065
  11. ASPIRIN [Concomitant]
     Route: 065

REACTIONS (4)
  - Lower gastrointestinal haemorrhage [Unknown]
  - Haemorrhagic anaemia [Unknown]
  - Atrial fibrillation [Unknown]
  - Heart rate increased [Unknown]
